FAERS Safety Report 6267543-X (Version None)
Quarter: 2009Q3

REPORT INFORMATION
  Report Type: 
  Country: None (occurrence: None)
  Receive Date: 20090714
  Receipt Date: 20090514
  Transmission Date: 20100115
  Serious: Yes (Hospitalization)
  Sender: FDA-Public Use
  Company Number: FR-MERCK-0810FRA00036

PATIENT
  Age: 41 Year
  Sex: Male

DRUGS (9)
  1. RALTEGRAVIR POTASSIUM [Suspect]
     Indication: HIV INFECTION
     Route: 048
     Dates: start: 20080825, end: 20080925
  2. ABACAVIR SULFATE AND LAMIVUDINE [Suspect]
     Indication: HIV INFECTION
     Route: 048
     Dates: start: 20080825, end: 20080925
  3. SULFAMETHOXAZOLE AND TRIMETHOPRIM [Concomitant]
     Indication: PROPHYLAXIS
     Route: 048
  4. OMEPRAZOLE [Concomitant]
     Route: 048
  5. LEUCOVORIN CALCIUM [Concomitant]
     Route: 048
     Dates: start: 20080818
  6. AMPHOTERICIN B [Concomitant]
     Route: 048
  7. ENFUVIRTIDE [Concomitant]
     Route: 065
     Dates: start: 20080825
  8. AMPHOTERICIN B [Concomitant]
     Route: 065
     Dates: start: 20080825
  9. BETAMETHASONE DIPROPIONATE [Concomitant]
     Route: 065
     Dates: start: 20080825

REACTIONS (3)
  - DRUG HYPERSENSITIVITY [None]
  - EOSINOPHILIA [None]
  - RASH MACULO-PAPULAR [None]
